FAERS Safety Report 20478918 (Version 1)
Quarter: 2022Q1

REPORT INFORMATION
  Report Type: Spontaneous
  Country: US (occurrence: US)
  Receive Date: 20220216
  Receipt Date: 20220216
  Transmission Date: 20220423
  Serious: Yes (Other)
  Sender: FDA-Public Use
  Company Number: US-BAYER-2022A017634

PATIENT
  Age: 63 Year
  Sex: Male

DRUGS (5)
  1. ASPIRIN [Suspect]
     Active Substance: ASPIRIN
     Indication: Arthralgia
     Dosage: UNK
  2. NAPROXEN SODIUM [Suspect]
     Active Substance: NAPROXEN SODIUM
     Indication: Arthralgia
     Dosage: UNK
  3. MELOXICAM [Suspect]
     Active Substance: MELOXICAM
     Indication: Arthralgia
     Dosage: UNK
  4. METOPROLOL [Suspect]
     Active Substance: METOPROLOL
     Dosage: UNK
  5. AMLODIPINE [Concomitant]
     Active Substance: AMLODIPINE BESYLATE
     Dosage: UNK

REACTIONS (3)
  - BRASH syndrome [None]
  - Gastritis [Recovered/Resolved]
  - Acute kidney injury [None]
